FAERS Safety Report 21306274 (Version 1)
Quarter: 2022Q3

REPORT INFORMATION
  Report Type: Spontaneous
  Country: US (occurrence: US)
  Receive Date: 20220908
  Receipt Date: 20220908
  Transmission Date: 20221026
  Serious: Yes (Other)
  Sender: FDA-Public Use
  Company Number: US-JNJFOC-20220903877

PATIENT
  Age: 30 Year
  Sex: Male

DRUGS (3)
  1. SPRAVATO [Suspect]
     Active Substance: ESKETAMINE
     Indication: Depression
     Dosage: FOR 6 MONTHS
     Dates: start: 2021
  2. SPRAVATO [Suspect]
     Active Substance: ESKETAMINE
     Dosage: LAST DOSE
     Dates: start: 20220401, end: 20220401
  3. ZOFRAN [Concomitant]
     Active Substance: ONDANSETRON HYDROCHLORIDE
     Indication: Premedication

REACTIONS (3)
  - Hallucination [Recovered/Resolved]
  - Dissociation [Recovered/Resolved]
  - Palpitations [Unknown]

NARRATIVE: CASE EVENT DATE: 20220401
